FAERS Safety Report 14261464 (Version 1)
Quarter: 2017Q4

REPORT INFORMATION
  Report Type: Spontaneous
  Country: US (occurrence: US)
  Receive Date: 20171208
  Receipt Date: 20171208
  Transmission Date: 20180321
  Serious: Yes (Hospitalization)
  Sender: FDA-Public Use
  Company Number: US-ROCHE-2035619

PATIENT
  Sex: Male

DRUGS (18)
  1. METOPROLOL SUCCINATE. [Concomitant]
     Active Substance: METOPROLOL SUCCINATE
  2. POTASSIUM CHLORIDE. [Concomitant]
     Active Substance: POTASSIUM CHLORIDE
  3. ESBRIET [Suspect]
     Active Substance: PIRFENIDONE
     Indication: IDIOPATHIC PULMONARY FIBROSIS
     Dosage: 1, TID AWEEK, 2 TID A WEEK, 3 TID A WEEK
     Route: 048
     Dates: start: 201710
  4. AZELASTINE HCL [Concomitant]
     Active Substance: AZELASTINE HYDROCHLORIDE
  5. FLOMAX [Concomitant]
     Active Substance: TAMSULOSIN HYDROCHLORIDE
  6. PRILOSEC [Concomitant]
     Active Substance: OMEPRAZOLE MAGNESIUM
  7. ROPINIROLE HYDROCHLORIDE. [Concomitant]
     Active Substance: ROPINIROLE HYDROCHLORIDE
  8. NORCO [Concomitant]
     Active Substance: ACETAMINOPHEN\HYDROCODONE BITARTRATE
  9. ESBRIET [Suspect]
     Active Substance: PIRFENIDONE
     Dosage: 1, TID AWEEK, 2 TID A WEEK, 3 TID A WEEK
     Route: 048
  10. AMBIEN [Concomitant]
     Active Substance: ZOLPIDEM TARTRATE
  11. SPIRONOLACTONE. [Concomitant]
     Active Substance: SPIRONOLACTONE
  12. ESBRIET [Suspect]
     Active Substance: PIRFENIDONE
     Dosage: 1, TID AWEEK, 2 TID A WEEK, 3 TID A WEEK
     Route: 048
     Dates: end: 20171107
  13. CELEBREX [Concomitant]
     Active Substance: CELECOXIB
  14. WARFARIN SODIUM. [Concomitant]
     Active Substance: WARFARIN SODIUM
  15. DICYCLOMINE HCL [Concomitant]
     Active Substance: DICYCLOMINE HYDROCHLORIDE
  16. DIGOXIN. [Concomitant]
     Active Substance: DIGOXIN
  17. FUROSEMIDE. [Concomitant]
     Active Substance: FUROSEMIDE
  18. SKELAXIN [Concomitant]
     Active Substance: METAXALONE

REACTIONS (1)
  - Pneumonia [Unknown]
